FAERS Safety Report 8769733 (Version 3)
Quarter: 2013Q1

REPORT INFORMATION
  Report Type: Report from Study
  Country: JP (occurrence: JP)
  Receive Date: 20120905
  Receipt Date: 20130204
  Transmission Date: 20140127
  Serious: Yes (Hospitalization)
  Sender: FDA-Public Use
  Company Number: JP-009507513-2012SP026635

PATIENT
  Age: 70 Year
  Sex: Female
  Weight: 52 kg

DRUGS (18)
  1. PEGINTRON [Suspect]
     Indication: CHRONIC HEPATITIS C
     Dosage: 1.5 ?G/KG, QW
     Route: 058
     Dates: start: 20120314, end: 20120822
  2. REBETOL [Suspect]
     Indication: CHRONIC HEPATITIS C
     Dosage: 400 MG, QD
     Route: 048
     Dates: start: 20120314, end: 20120404
  3. REBETOL [Suspect]
     Dosage: 200 MG, QD
     Route: 048
     Dates: start: 20120405, end: 20120828
  4. TELAVIC [Suspect]
     Indication: CHRONIC HEPATITIS C
     Dosage: 1500 MG, QD
     Route: 048
     Dates: start: 20120314, end: 20120605
  5. URSO [Concomitant]
     Indication: CHRONIC HEPATITIS C
     Dosage: 600 MG, QD, FORMULATION: POR
     Route: 048
     Dates: start: 20110811
  6. NORVASC [Concomitant]
     Indication: HYPERTENSION
     Dosage: 5 MG, QD
     Route: 048
     Dates: end: 20120424
  7. SELBEX [Concomitant]
     Indication: GASTRITIS
     Dosage: 1.5 G, QD, FORMULATION: POR, DOSAGE IS UNCERTAIN DURING A DAY
     Route: 048
     Dates: end: 20120828
  8. SELBEX [Concomitant]
     Indication: PROPHYLAXIS
  9. LOXONIN [Concomitant]
     Indication: PROPHYLAXIS
     Dosage: 60 MG, PRN
     Route: 048
     Dates: start: 20120314
  10. LOXONIN [Concomitant]
     Dosage: AS NEEDED
     Route: 048
  11. ZYLORIC [Concomitant]
     Indication: HYPERURICAEMIA
     Dosage: 100 MG, QD
     Route: 048
     Dates: start: 20120317
  12. DEPAS [Concomitant]
     Indication: INSOMNIA
     Dosage: 0.5 MG, QD
     Route: 048
  13. LENDEM [Concomitant]
     Dosage: 0.25 MG, QD
     Route: 048
  14. JUZEN-TAIHO-TO [Concomitant]
     Indication: PROPHYLAXIS
     Dosage: THREE TSTS
     Route: 048
     Dates: start: 20120314
  15. NEXIUM [Concomitant]
     Indication: GASTROOESOPHAGEAL REFLUX DISEASE
     Dosage: 20 MG, QD
     Route: 048
     Dates: start: 20120725
  16. LENDORMIN [Concomitant]
     Indication: INSOMNIA
     Dosage: 0.25 MG, QD
     Route: 048
  17. NAUZELIN [Concomitant]
     Dosage: 10 MG / DAY, AS NEEDED
  18. MYSER (DIFLUPREDNATE) [Concomitant]
     Dosage: UNK, PRN
     Route: 061

REACTIONS (3)
  - Decreased appetite [Recovered/Resolved]
  - Nausea [Recovered/Resolved]
  - Psychiatric symptom [Recovered/Resolved]
